FAERS Safety Report 15676612 (Version 3)
Quarter: 2018Q4

REPORT INFORMATION
  Report Type: Report from Study
  Country: RU (occurrence: RU)
  Receive Date: 20181130
  Receipt Date: 20181227
  Transmission Date: 20190205
  Serious: No
  Sender: FDA-Public Use
  Company Number: RU-SAKK-2018SA276356AA

PATIENT
  Age: 62 Year
  Sex: Female
  Weight: 69 kg

DRUGS (10)
  1. METFORMINUM [METFORMIN HYDROCHLORIDE] [Concomitant]
     Indication: PROPHYLAXIS
     Dosage: 2000 MG, QD
     Route: 048
     Dates: start: 2016, end: 20181030
  2. GLIBENCLAMIDUM [Concomitant]
     Indication: PROPHYLAXIS
     Dosage: 3.5 MG, QD
     Route: 048
     Dates: start: 20180201, end: 20180928
  3. INSULIN ASPART [Concomitant]
     Active Substance: INSULIN ASPART
     Dosage: 24 U
     Route: 058
     Dates: start: 20181004, end: 20181030
  4. VALSACOR [Concomitant]
     Active Substance: VALSARTAN
     Indication: HYPERTENSION
     Dosage: 80 MG, UNK
     Route: 048
     Dates: start: 20180928
  5. METFORMINUM [METFORMIN HYDROCHLORIDE] [Concomitant]
     Dosage: 750 MG, TOTAL
     Route: 048
     Dates: start: 20181126
  6. INSULIN GLARGINE [Suspect]
     Active Substance: INSULIN GLARGINE
     Indication: TYPE 2 DIABETES MELLITUS
     Dosage: 10 U, QD
     Dates: start: 20180628
  7. INSULIN ASPART [Concomitant]
     Active Substance: INSULIN ASPART
     Dosage: 18 IU, UNK
     Route: 058
     Dates: start: 20180928, end: 20181004
  8. INSULIN GLARGINE [Suspect]
     Active Substance: INSULIN GLARGINE
     Dosage: 14 U, QD
     Dates: start: 20180928
  9. INSULIN ASPART [Concomitant]
     Active Substance: INSULIN ASPART
     Indication: HYPERGLYCAEMIA
     Dosage: 18 UNK
     Route: 058
     Dates: start: 20181030, end: 20181126
  10. METFORMINUM [METFORMIN HYDROCHLORIDE] [Concomitant]
     Dosage: 1500 MG, UNK
     Route: 048
     Dates: start: 20181030, end: 20181126

REACTIONS (9)
  - Hyperglycaemia [Not Recovered/Not Resolved]
  - Hypoglycaemia [Recovered/Resolved]
  - Hypoglycaemia [Recovered/Resolved]
  - Hypoglycaemia [Recovered/Resolved]
  - Diabetic metabolic decompensation [Not Recovered/Not Resolved]
  - Hypoglycaemia [Recovered/Resolved]
  - Hypoglycaemia [Recovered/Resolved]
  - Hypoglycaemia [Recovered/Resolved]
  - Hypoglycaemia [Recovered/Resolved]

NARRATIVE: CASE EVENT DATE: 20180926
